FAERS Safety Report 10756037 (Version 1)
Quarter: 2015Q1

REPORT INFORMATION
  Report Type: Spontaneous
  Country: US (occurrence: US)
  Receive Date: 20150202
  Receipt Date: 20150202
  Transmission Date: 20150721
  Serious: Yes (Other)
  Sender: FDA-Public Use
  Company Number: US-BAYER-2015-010720

PATIENT
  Age: 58 Year
  Sex: Male
  Weight: 107.48 kg

DRUGS (5)
  1. EFFEXOR [Concomitant]
     Active Substance: VENLAFAXINE HYDROCHLORIDE
  2. RID ESSENTIAL LICE ELIMINATION KIT [Suspect]
     Active Substance: PIPERONYL BUTOXIDE\PYRETHRUM EXTRACT
     Indication: ACARODERMATITIS
  3. RID ESSENTIAL LICE ELIMINATION KIT [Suspect]
     Active Substance: PIPERONYL BUTOXIDE\PYRETHRUM EXTRACT
     Indication: LICE INFESTATION
     Dosage: UNK
     Route: 061
     Dates: start: 20150111, end: 20150121
  4. RISPERIDONE. [Concomitant]
     Active Substance: RISPERIDONE
  5. AMBIEN [Concomitant]
     Active Substance: ZOLPIDEM TARTRATE

REACTIONS (8)
  - Skin haemorrhage [None]
  - Dyspnoea [None]
  - Accidental exposure to product [None]
  - Medication error [None]
  - Laceration [None]
  - Incorrect drug administration duration [None]
  - Skin exfoliation [None]
  - Inappropriate schedule of drug administration [None]

NARRATIVE: CASE EVENT DATE: 201501
